FAERS Safety Report 19595404 (Version 4)
Quarter: 2021Q3

REPORT INFORMATION
  Report Type: Report from Study
  Country: None (occurrence: ES)
  Receive Date: 20210723
  Receipt Date: 20210730
  Transmission Date: 20211014
  Serious: Yes (Death, Hospitalization)
  Sender: FDA-Public Use
  Company Number: ES-ABBVIE-21K-144-4001104-00

PATIENT
  Age: 62 Year
  Sex: Female

DRUGS (3)
  1. DUODOPA [Suspect]
     Active Substance: CARBIDOPA\LEVODOPA
  2. SINEMET [Concomitant]
     Active Substance: CARBIDOPA\LEVODOPA
     Indication: PRODUCT USED FOR UNKNOWN INDICATION
     Dosage: HALF TABLET, FREQUENCY: ONE PER NIGHT.?TABLET AND A HALF
     Route: 048
     Dates: start: 20210720
  3. DUODOPA [Suspect]
     Active Substance: CARBIDOPA\LEVODOPA
     Indication: PARKINSON^S DISEASE
     Route: 050
     Dates: start: 20200623

REACTIONS (8)
  - Speech disorder [Recovering/Resolving]
  - Gastroenteritis [Not Recovered/Not Resolved]
  - Discomfort [Recovering/Resolving]
  - Parkinson^s disease [Not Recovered/Not Resolved]
  - Infection [Fatal]
  - Agitation [Recovering/Resolving]
  - Meningitis [Fatal]
  - Urinary tract infection [Recovering/Resolving]

NARRATIVE: CASE EVENT DATE: 20210707
